FAERS Safety Report 6194789-1 (Version None)
Quarter: 2009Q2

REPORT INFORMATION
  Report Type: 
  Country: None (occurrence: None)
  Receive Date: 20090515
  Receipt Date: 20090427
  Transmission Date: 20091009
  Serious: Yes (Other)
  Sender: FDA-Public Use
  Company Number: B0572861A

PATIENT
  Age: 69 Year
  Sex: Male

DRUGS (3)
  1. ALKERAN [Suspect]
     Indication: METASTASES TO LIVER
     Dosage: 1 MG/KG / INTRAVENOUS
     Route: 042
  2. HEPARIN [Concomitant]
  3. HAEMACCEL [Concomitant]

REACTIONS (1)
  - HEPATOTOXICITY [None]
